FAERS Safety Report 8585698-9 (Version None)
Quarter: 2012Q3

REPORT INFORMATION
  Report Type: 
  Country: None (occurrence: None)
  Receive Date: 20120802
  Receipt Date: 20120802
  Transmission Date: 20120928
  Serious: Yes (Other)
  Sender: FDA-Public Use
  Company Number: None

PATIENT
  Sex: Female

DRUGS (7)
  1. GABAPENTON [Concomitant]
  2. REFLEX MEDICATION [Concomitant]
  3. LIPITOR [Concomitant]
  4. CALCIUM MULTIVIATIMIN [Concomitant]
  5. PAXCIL [Concomitant]
  6. CEVIMELINE [Suspect]
     Indication: SJOGREN'S SYNDROME
     Dosage: 30 MG ONCE A DAY PO
     Route: 048
     Dates: start: 20120722, end: 20120726
  7. MUSINEX [Concomitant]

REACTIONS (4)
  - VOMITING [None]
  - NAUSEA [None]
  - DIARRHOEA [None]
  - ARTHRALGIA [None]
